FAERS Safety Report 13090876 (Version 19)
Quarter: 2021Q1

REPORT INFORMATION
  Report Type: Other
  Country: CA (occurrence: CA)
  Receive Date: 20170106
  Receipt Date: 20210317
  Transmission Date: 20210419
  Serious: Yes (Other)
  Sender: FDA-Public Use
  Company Number: CA-ROCHE-1637968

PATIENT
  Age: 61 Year
  Sex: Female

DRUGS (20)
  1. INDAPAMIDE. [Suspect]
     Active Substance: INDAPAMIDE
     Indication: POLYURIA
     Route: 065
  2. LASIX [Suspect]
     Active Substance: FUROSEMIDE
     Indication: POLYURIA
     Route: 065
  3. METHYLPREDNISOLONE. [Concomitant]
     Active Substance: METHYLPREDNISOLONE
     Route: 042
     Dates: start: 20150922
  4. SOFLAX (CANADA) [Concomitant]
  5. PLAQUENIL [Concomitant]
     Active Substance: HYDROXYCHLOROQUINE SULFATE
  6. OXYBUTYNIN. [Concomitant]
     Active Substance: OXYBUTYNIN CHLORIDE
     Indication: MICTURITION URGENCY
  7. BENADRYL [Suspect]
     Active Substance: DIPHENHYDRAMINE HYDROCHLORIDE
     Indication: PREMEDICATION
     Route: 048
     Dates: start: 20150922
  8. ACETAMINOPHEN. [Concomitant]
     Active Substance: ACETAMINOPHEN
     Route: 048
     Dates: start: 20150922
  9. RISEDRONATE [Concomitant]
     Active Substance: RISEDRONATE SODIUM
  10. PREGABALIN. [Concomitant]
     Active Substance: PREGABALIN
  11. LACTULOSE. [Concomitant]
     Active Substance: LACTULOSE
  12. DIPHENHYDRAMINE HCL [Concomitant]
     Active Substance: DIPHENHYDRAMINE HYDROCHLORIDE
     Route: 048
     Dates: start: 20150922
  13. MELOXICAM. [Concomitant]
     Active Substance: MELOXICAM
  14. GABAPENTIN. [Concomitant]
     Active Substance: GABAPENTIN
  15. RITUXAN [Suspect]
     Active Substance: RITUXIMAB
     Indication: RHEUMATOID ARTHRITIS
     Dosage: LATEST INFUSION 2017?AUG?31 (INFUSION 7)?MOST RECENT DOSE ON 10/OCT/2018
     Route: 042
     Dates: start: 20150922
  16. RABEPRAZOLE [Concomitant]
     Active Substance: RABEPRAZOLE
  17. ACTEMRA [Suspect]
     Active Substance: TOCILIZUMAB
     Indication: RHEUMATOID ARTHRITIS
     Route: 042
     Dates: start: 20140917, end: 20150602
  18. HYDROMORPH CONTIN [Concomitant]
     Active Substance: HYDROMORPHONE
  19. FUROSEMIDE. [Concomitant]
     Active Substance: FUROSEMIDE
  20. CYMBALTA [Concomitant]
     Active Substance: DULOXETINE HYDROCHLORIDE

REACTIONS (27)
  - Osteoarthritis [Recovering/Resolving]
  - Blood pressure systolic increased [Unknown]
  - Arthralgia [Unknown]
  - Pain [Unknown]
  - Dyspnoea [Not Recovered/Not Resolved]
  - Hypotension [Recovered/Resolved]
  - Somnolence [Unknown]
  - Neuralgia [Not Recovered/Not Resolved]
  - Blood cholesterol increased [Unknown]
  - Pulmonary function test decreased [Unknown]
  - Blood pressure diastolic abnormal [Unknown]
  - Hypersensitivity [Unknown]
  - Arthralgia [Not Recovered/Not Resolved]
  - Blood pressure diastolic decreased [Unknown]
  - Micturition urgency [Not Recovered/Not Resolved]
  - Vasculitis [Unknown]
  - Fibromyalgia [Unknown]
  - Blood pressure increased [Unknown]
  - Rheumatoid arthritis [Unknown]
  - Pyoderma gangrenosum [Unknown]
  - Spinal osteoarthritis [Unknown]
  - Back pain [Recovered/Resolved]
  - Periarthritis [Unknown]
  - Oxygen saturation decreased [Unknown]
  - Infusion related reaction [Recovering/Resolving]
  - Blood pressure systolic abnormal [Unknown]
  - Pollakiuria [Unknown]

NARRATIVE: CASE EVENT DATE: 20150922
